FAERS Safety Report 7119764-1 (Version None)
Quarter: 2010Q4

REPORT INFORMATION
  Report Type: 
  Country: None (occurrence: None)
  Receive Date: 20101123
  Receipt Date: 20100809
  Transmission Date: 20110411
  Serious: No
  Sender: FDA-Public Use
  Company Number: US-BRISTOL-MYERS SQUIBB COMPANY-15232093

PATIENT
  Age: 77 Year
  Sex: Male
  Weight: 77 kg

DRUGS (8)
  1. ONGLYZA [Suspect]
     Dates: start: 20100101
  2. INSULIN [Concomitant]
  3. GLYBURIDE [Concomitant]
  4. LOSARTAN [Concomitant]
  5. DILTIAZEM HCL [Concomitant]
  6. PRAVASTATIN SODIUM [Concomitant]
  7. CALCITRIOL [Concomitant]
  8. ASPIRIN [Concomitant]

REACTIONS (1)
  - RASH [None]
